FAERS Safety Report 10076262 (Version 2)
Quarter: 2014Q2

REPORT INFORMATION
  Report Type: Spontaneous
  Country: US (occurrence: US)
  Receive Date: 20140414
  Receipt Date: 20140421
  Transmission Date: 20141212
  Serious: Yes (Hospitalization, Other)
  Sender: FDA-Public Use
  Company Number: US-BAXTER-2014BAX017813

PATIENT
  Sex: Male

DRUGS (1)
  1. DIANEAL LOW CALCIUM [Suspect]
     Indication: PERITONEAL DIALYSIS
     Route: 033
     Dates: start: 201302

REACTIONS (5)
  - Appendicitis perforated [Recovering/Resolving]
  - Sepsis [Unknown]
  - Pharyngitis [Recovering/Resolving]
  - Hyperglycaemia [Recovered/Resolved]
  - Peritonitis [Recovering/Resolving]
